FAERS Safety Report 14938618 (Version 1)
Quarter: 2018Q2

REPORT INFORMATION
  Report Type: Report from Study
  Country: AU (occurrence: AU)
  Receive Date: 20180525
  Receipt Date: 20180525
  Transmission Date: 20180711
  Serious: Yes (Hospitalization, Other)
  Sender: FDA-Public Use
  Company Number: AU-MYLANLABS-2017M1047085

PATIENT
  Age: 51 Year
  Sex: Male

DRUGS (2)
  1. CLOZARIL [Suspect]
     Active Substance: CLOZAPINE
     Dosage: UNK
     Route: 048
     Dates: start: 20180510
  2. CLOZARIL [Suspect]
     Active Substance: CLOZAPINE
     Indication: SCHIZOPHRENIA
     Dosage: 150 MG, UNK
     Route: 048
     Dates: start: 20100608, end: 20180504

REACTIONS (5)
  - Antipsychotic drug level increased [Unknown]
  - Refeeding syndrome [Unknown]
  - Diet refusal [Unknown]
  - Psychotic disorder [Unknown]
  - Mental impairment [Recovered/Resolved]

NARRATIVE: CASE EVENT DATE: 201707
